FAERS Safety Report 6284913-4 (Version None)
Quarter: 2009Q3

REPORT INFORMATION
  Report Type: 
  Country: None (occurrence: None)
  Receive Date: 20090723
  Receipt Date: 20090710
  Transmission Date: 20100115
  Serious: Yes (Other)
  Sender: FDA-Public Use
  Company Number: 2009-02827

PATIENT
  Age: 84 Year
  Sex: Male
  Weight: 64 kg

DRUGS (4)
  1. VELCADE [Suspect]
     Indication: MULTIPLE MYELOMA
     Dosage: 2 MG, INTRAVENOUS
     Route: 042
     Dates: start: 20090629
  2. DEXAMETHASONE TAB [Suspect]
     Indication: MULTIPLE MYELOMA
     Dosage: 40 MG, ORAL ; 20 MG, ORAL
     Route: 048
     Dates: start: 20090629, end: 20090706
  3. DEXAMETHASONE TAB [Suspect]
     Indication: MULTIPLE MYELOMA
     Dosage: 40 MG, ORAL ; 20 MG, ORAL
     Route: 048
     Dates: start: 20090706
  4. ASPIRIN [Concomitant]

REACTIONS (8)
  - ANGINA PECTORIS [None]
  - ANXIETY [None]
  - DIARRHOEA [None]
  - HAEMATOCHEZIA [None]
  - INSOMNIA [None]
  - IRRITABILITY [None]
  - TACHYCARDIA [None]
  - THROMBOCYTOPENIA [None]
